FAERS Safety Report 14948837 (Version 1)
Quarter: 2018Q2

REPORT INFORMATION
  Report Type: Spontaneous
  Country: SE (occurrence: SE)
  Receive Date: 20180529
  Receipt Date: 20180529
  Transmission Date: 20180711
  Serious: Yes (Life-Threatening)
  Sender: FDA-Public Use
  Company Number: SE-SHIRE-SE201820128

PATIENT
  Age: 17 Year
  Sex: Female

DRUGS (3)
  1. FIRAZYR [Suspect]
     Active Substance: ICATIBANT ACETATE
     Indication: PRODUCT USED FOR UNKNOWN INDICATION
     Dosage: UNK
     Route: 065
  2. EPIPEN [Suspect]
     Active Substance: EPINEPHRINE
     Indication: SWOLLEN TONGUE
     Dosage: 0.30 MG, UNK
     Route: 030
  3. EPIPEN [Suspect]
     Active Substance: EPINEPHRINE
     Indication: LIP SWELLING

REACTIONS (3)
  - Expired product administered [Recovered/Resolved]
  - Needle issue [Unknown]
  - Device failure [Recovered/Resolved]
